FAERS Safety Report 6543928-9 (Version None)
Quarter: 2010Q1

REPORT INFORMATION
  Report Type: 
  Country: None (occurrence: None)
  Receive Date: 20100120
  Receipt Date: 20100112
  Transmission Date: 20100710
  Serious: Yes (Hospitalization)
  Sender: FDA-Public Use
  Company Number: US-ELI_LILLY_AND_COMPANY-US201001002319

PATIENT
  Sex: Female

DRUGS (3)
  1. HUMALOG [Suspect]
  2. PREDNISONE [Concomitant]
     Indication: ASTHMA
     Dosage: 40 MG, DAILY (1/D)
  3. PREDNISONE [Concomitant]
     Dosage: 10 MG, DAILY (1/D)

REACTIONS (5)
  - ASTHMA [None]
  - BLOOD GLUCOSE DECREASED [None]
  - BLOOD GLUCOSE INCREASED [None]
  - INCORRECT DOSE ADMINISTERED [None]
  - PNEUMONIA [None]
